FAERS Safety Report 6669665-8 (Version None)
Quarter: 2010Q2

REPORT INFORMATION
  Report Type: 
  Country: None (occurrence: None)
  Receive Date: 20100406
  Receipt Date: 20100325
  Transmission Date: 20101027
  Serious: Yes (Other)
  Sender: FDA-Public Use
  Company Number: US-PFIZER INC-2010039664

PATIENT
  Sex: Female

DRUGS (5)
  1. XANAX [Suspect]
  2. NEURONTIN [Suspect]
  3. LYRICA [Suspect]
     Indication: FIBROMYALGIA
  4. TRAMADOL [Suspect]
  5. MILNACIPRAN [Suspect]

REACTIONS (11)
  - AGITATION [None]
  - COORDINATION ABNORMAL [None]
  - DEPRESSION [None]
  - DRUG INEFFECTIVE [None]
  - DYSKINESIA [None]
  - FIBROMYALGIA [None]
  - INSOMNIA [None]
  - MYOCLONIC EPILEPSY [None]
  - PAIN [None]
  - TREMOR [None]
  - WITHDRAWAL SYNDROME [None]
